FAERS Safety Report 23886831 (Version 1)
Quarter: 2024Q2

REPORT INFORMATION
  Report Type: Spontaneous
  Country: RS (occurrence: RS)
  Receive Date: 20240522
  Receipt Date: 20240522
  Transmission Date: 20240716
  Serious: Yes (Other)
  Sender: FDA-Public Use
  Company Number: RS-JNJFOC-20240548917

PATIENT
  Age: 23 Year
  Sex: Male

DRUGS (3)
  1. HALOPERIDOL [Suspect]
     Active Substance: HALOPERIDOL
     Indication: Product used for unknown indication
     Dosage: 2+2+0
     Route: 030
     Dates: start: 20240311, end: 20240404
  2. CHLORPROMAZINE HYDROCHLORIDE [Concomitant]
     Active Substance: CHLORPROMAZINE HYDROCHLORIDE
     Dosage: 2+2+4
     Route: 048
     Dates: start: 20240311, end: 20240402
  3. CLOZAPINE [Concomitant]
     Active Substance: CLOZAPINE
     Dosage: 0+0+1/2
     Route: 048
     Dates: start: 20240328, end: 20240402

REACTIONS (3)
  - Hepatotoxicity [Unknown]
  - Jaundice [Unknown]
  - Laboratory test abnormal [Unknown]

NARRATIVE: CASE EVENT DATE: 20240401
